FAERS Safety Report 5913286-9 (Version None)
Quarter: 2008Q4

REPORT INFORMATION
  Report Type: 
  Country: None (occurrence: None)
  Receive Date: 20081009
  Receipt Date: 20080929
  Transmission Date: 20090506
  Serious: Yes (Death, Other)
  Sender: FDA-Public Use
  Company Number: US-PURDUE-USA_2008_0033940

PATIENT
  Age: 41 Year
  Sex: Male
  Weight: 159 kg

DRUGS (4)
  1. OXYCONTIN [Suspect]
     Dosage: UNK MG, UNK
     Route: 048
  2. OXYCODONE HCL CR TABLETS (SIMILAR TO NDA 20-553) [Suspect]
     Indication: PAIN
     Dosage: UNK MG, UNK
     Route: 048
  3. OXYMORPHONE HCL [Suspect]
     Indication: DRUG USE FOR UNKNOWN INDICATION
     Dosage: UNK, UNK
  4. QUETIAPINE FUMARATE [Suspect]
     Indication: DRUG USE FOR UNKNOWN INDICATION
     Dosage: UNK, UNK

REACTIONS (5)
  - DYSPNOEA [None]
  - GOUT [None]
  - HYPERTENSION [None]
  - MYOCARDIAL ISCHAEMIA [None]
  - RESPIRATORY DEPRESSION [None]
